FAERS Safety Report 22307189 (Version 2)
Quarter: 2023Q2

REPORT INFORMATION
  Report Type: Spontaneous
  Country: PL (occurrence: PL)
  Receive Date: 20230511
  Receipt Date: 20230629
  Transmission Date: 20230722
  Serious: Yes (Other)
  Sender: FDA-Public Use
  Company Number: PL-AUROBINDO-AUR-APL-2023-015325

PATIENT
  Age: 45 Year
  Sex: Female

DRUGS (10)
  1. ESCITALOPRAM [Suspect]
     Active Substance: ESCITALOPRAM OXALATE
     Indication: Tension
     Dosage: 10 MILLIGRAM (ESCITALOPRAM (10MG) HAS BEEN PROPOSED. THREE DAYS LATER, THE PATIENT REPORTED SEVERE H
     Route: 065
  2. ESCITALOPRAM [Suspect]
     Active Substance: ESCITALOPRAM OXALATE
     Indication: Fatigue
     Dosage: 5 MILLIGRAM
     Route: 065
  3. ESCITALOPRAM [Suspect]
     Active Substance: ESCITALOPRAM OXALATE
     Indication: Feeling abnormal
     Dosage: 10 MILLIGRAM
     Route: 065
  4. ESCITALOPRAM [Suspect]
     Active Substance: ESCITALOPRAM OXALATE
     Indication: Asthenia
     Dosage: 5 MILLIGRAM
     Route: 065
  5. ESCITALOPRAM [Suspect]
     Active Substance: ESCITALOPRAM OXALATE
     Indication: Sleep disorder
  6. VITAMIN D3 [Suspect]
     Active Substance: CHOLECALCIFEROL
     Indication: Vitamin supplementation
     Dosage: UNK
     Route: 065
  7. MIANSERIN [Suspect]
     Active Substance: MIANSERIN
     Indication: Sleep disorder
     Dosage: UNK
     Route: 065
  8. MIANSERIN [Suspect]
     Active Substance: MIANSERIN
     Indication: Anxiolytic therapy
     Dosage: 10 MILLIGRAM
     Route: 065
  9. TRAZODONE [Concomitant]
     Active Substance: TRAZODONE HYDROCHLORIDE
     Indication: Sleep disorder
     Dosage: 50 MILLIGRAM
     Route: 065
  10. IBUPROFEN [Concomitant]
     Active Substance: IBUPROFEN
     Indication: Headache
     Dosage: 400 MILLIGRAM, ONCE A DAY
     Route: 065

REACTIONS (4)
  - Headache [Recovered/Resolved]
  - Drug ineffective [Unknown]
  - Weight increased [Not Recovered/Not Resolved]
  - Off label use [Unknown]
